FAERS Safety Report 6964990-5 (Version None)
Quarter: 2010Q3

REPORT INFORMATION
  Report Type: 
  Country: None (occurrence: None)
  Receive Date: 20100903
  Receipt Date: 20100827
  Transmission Date: 20110219
  Serious: Yes (Hospitalization)
  Sender: FDA-Public Use
  Company Number: SE-SANOFI-AVENTIS-2010SA050983

PATIENT
  Age: 51 Year
  Sex: Female

DRUGS (5)
  1. ARAVA [Suspect]
     Route: 048
     Dates: start: 20060301, end: 20080612
  2. PLAQUENIL [Suspect]
     Dates: start: 20070301
  3. RELIFEX [Concomitant]
  4. ACETAMINOPHEN [Concomitant]
  5. TIPAROL [Concomitant]

REACTIONS (2)
  - CARDIAC FAILURE [None]
  - CARDIOMYOPATHY [None]
